FAERS Safety Report 5895069-1 (Version None)
Quarter: 2008Q3

REPORT INFORMATION
  Report Type: 
  Country: None (occurrence: None)
  Receive Date: 20080924
  Receipt Date: 20080918
  Transmission Date: 20090109
  Serious: Yes (Hospitalization)
  Sender: FDA-Public Use
  Company Number: US-WATSON-2008-05588

PATIENT
  Age: 35 Year
  Sex: Female

DRUGS (5)
  1. FLUOXETINE (WATSON LABORATORIES) [Suspect]
     Indication: DEPRESSION
     Dosage: 200 MG, UNK
     Route: 048
  2. FLUOXETINE (WATSON LABORATORIES) [Suspect]
     Dosage: 40 MG, DAILY
     Route: 065
  3. LAMOTRIGINE [Suspect]
     Indication: MOOD SWINGS
     Dosage: 2800 MG, UNK
     Route: 048
  4. LAMOTRIGINE [Suspect]
     Dosage: 400 MG, DAILY
     Route: 065
  5. LAMOTRIGINE [Suspect]
     Dosage: 200 MG, DAILY

REACTIONS (3)
  - DELIRIUM [None]
  - DRUG INTERACTION [None]
  - DRUG TOXICITY [None]
